FAERS Safety Report 4666616-2 (Version None)
Quarter: 2005Q2

REPORT INFORMATION
  Report Type: 
  Country: None (occurrence: None)
  Receive Date: 20050519
  Receipt Date: 20050207
  Transmission Date: 20051028
  Serious: Yes (Death, Other)
  Sender: FDA-Public Use
  Company Number: PHBS2005BE02098

PATIENT
  Age: 63 Year
  Sex: Male

DRUGS (22)
  1. ZOLADEX [Concomitant]
     Route: 065
     Dates: start: 19990101
  2. ANDROCUR [Concomitant]
     Route: 065
     Dates: start: 19990101
  3. MEDROL [Concomitant]
     Dosage: 32 MG, QD
     Route: 065
     Dates: start: 20011001
  4. MEDROL [Concomitant]
     Dosage: 8 MG, QOD
     Route: 065
     Dates: start: 20020301
  5. MEDROL [Concomitant]
     Dosage: 8 MG/3 DAYS
     Dates: start: 20020801
  6. MEDROL [Concomitant]
     Dosage: 8 MG, UNK
     Dates: start: 20030601
  7. ESTRACYT [Concomitant]
     Route: 065
     Dates: start: 20011017
  8. ESTRACYT [Concomitant]
     Dosage: 2 DF, BID
     Route: 065
     Dates: start: 20020401, end: 20021201
  9. MORPHINE [Concomitant]
     Route: 065
     Dates: start: 20030701
  10. NOVANTRONE [Concomitant]
     Dosage: UNK, TIW
     Route: 065
     Dates: start: 20021201, end: 20031001
  11. TAXOTERE [Concomitant]
     Route: 065
     Dates: start: 20031001
  12. FELDENE [Concomitant]
     Route: 065
  13. DURAGESIC-100 [Concomitant]
     Route: 064
  14. ZOFRAN [Concomitant]
     Route: 065
  15. NEOTIGASON [Concomitant]
     Indication: PSORIASIS
     Route: 065
     Dates: start: 20020101
  16. ALDACTONE [Concomitant]
     Route: 065
     Dates: start: 20020101
  17. ZOMETA [Suspect]
     Indication: METASTASES TO BONE
     Dosage: 4 MG, QMO
     Route: 042
     Dates: start: 20020919, end: 20041213
  18. AREDIA [Suspect]
     Indication: METASTASES TO BONE
     Dosage: 90 MG, QD
     Route: 042
     Dates: start: 20011009, end: 20011009
  19. AREDIA [Suspect]
     Dosage: 60 MG, QD
     Route: 042
     Dates: start: 20011016, end: 20011016
  20. AREDIA [Suspect]
     Dosage: 90 MG, QMO
     Route: 042
     Dates: end: 20020619
  21. AREDIA [Suspect]
     Dosage: 60 MG, QD
     Route: 042
     Dates: start: 20020717, end: 20020717
  22. AREDIA [Suspect]
     Dosage: 90 MG, QD
     Route: 042
     Dates: start: 20020821, end: 20020821

REACTIONS (11)
  - BACTERIAL INFECTION [None]
  - BONE SCAN ABNORMAL [None]
  - DIPLOPIA [None]
  - DISEASE PROGRESSION [None]
  - FIBROSIS [None]
  - METASTASES TO BONE [None]
  - METASTASES TO BONE MARROW [None]
  - OSTEOLYSIS [None]
  - OSTEOMYELITIS [None]
  - OSTEONECROSIS [None]
  - PRIMARY SEQUESTRUM [None]
